FAERS Safety Report 25941675 (Version 1)
Quarter: 2025Q4

REPORT INFORMATION
  Report Type: Report from Study
  Country: US (occurrence: US)
  Receive Date: 20251020
  Receipt Date: 20251020
  Transmission Date: 20260117
  Serious: Yes (Hospitalization)
  Sender: ABBVIE
  Company Number: US-ABBVIE-6507162

PATIENT
  Age: 53 Year
  Sex: Male

DRUGS (1)
  1. SKYRIZI [Suspect]
     Active Substance: RISANKIZUMAB-RZAA
     Indication: Crohn^s disease
     Dosage: LAST ADMINISTRATION DATE: 2025
     Route: 058
     Dates: start: 20250109

REACTIONS (7)
  - Visual impairment [Recovered/Resolved]
  - Cyst rupture [Recovering/Resolving]
  - Spinal disorder [Unknown]
  - Spinal pain [Unknown]
  - Hypoaesthesia [Unknown]
  - Fall [Unknown]
  - Nasopharyngitis [Recovering/Resolving]

NARRATIVE: CASE EVENT DATE: 20250101
